FAERS Safety Report 7670386-3 (Version None)
Quarter: 2011Q3

REPORT INFORMATION
  Report Type: 
  Country: None (occurrence: None)
  Receive Date: 20110809
  Receipt Date: 20110727
  Transmission Date: 20111222
  Serious: No
  Sender: FDA-Public Use
  Company Number: US-BIOGENIDEC-2011BI028283

PATIENT
  Age: 25 Year
  Sex: Female

DRUGS (1)
  1. TYSABRI [Suspect]
     Indication: MULTIPLE SCLEROSIS
     Route: 042
     Dates: start: 20110601, end: 20110727

REACTIONS (5)
  - ERYTHEMA [None]
  - EYE SWELLING [None]
  - EYE PRURITUS [None]
  - THROAT IRRITATION [None]
  - URTICARIA [None]
